FAERS Safety Report 7184131-1 (Version None)
Quarter: 2010Q4

REPORT INFORMATION
  Report Type: 
  Country: None (occurrence: None)
  Receive Date: 20101222
  Receipt Date: 20101216
  Transmission Date: 20110411
  Serious: Yes (Death, Hospitalization)
  Sender: FDA-Public Use
  Company Number: GB-US-EMD SERONO, INC.-7024628

PATIENT
  Sex: Female

DRUGS (9)
  1. REBIF [Suspect]
     Indication: PRODUCT USED FOR UNKNOWN INDICATION
  2. TIZANIDINE HCL [Concomitant]
  3. BACLOFEN [Concomitant]
  4. OXYBUTINE [Concomitant]
  5. OMEPROZOLONE [Concomitant]
  6. AMITRIPTYLINE [Concomitant]
  7. DURAGESIC-100 [Concomitant]
  8. CALOGEN [Concomitant]
  9. MEDROXYPROGESTERONE [Concomitant]

REACTIONS (1)
  - MULTIPLE SCLEROSIS [None]
